FAERS Safety Report 4560960-5 (Version None)
Quarter: 2005Q1

REPORT INFORMATION
  Report Type: 
  Country: None (occurrence: None)
  Receive Date: 20050121
  Receipt Date: 20050105
  Transmission Date: 20050727
  Serious: No
  Sender: FDA-Public Use
  Company Number: USA040979631

PATIENT
  Age: 45 Year
  Sex: Male
  Weight: 81 kg

DRUGS (4)
  1. STRATTERA [Suspect]
     Indication: ATTENTION DEFICIT/HYPERACTIVITY DISORDER
     Dosage: 120 MG DAY
     Dates: start: 20030201
  2. ADDERALL 5 [Concomitant]
  3. WELLBUTRIN [Concomitant]
  4. VIAGRA [Concomitant]

REACTIONS (8)
  - ALANINE AMINOTRANSFERASE INCREASED [None]
  - ANXIETY [None]
  - CHEST PAIN [None]
  - DIARRHOEA [None]
  - HYPERHIDROSIS [None]
  - MEDICATION ERROR [None]
  - PRESBYOPIA [None]
  - TREMOR [None]
